FAERS Safety Report 12437815 (Version 1)
Quarter: 2016Q2

REPORT INFORMATION
  Report Type: Spontaneous
  Country: US (occurrence: None)
  Receive Date: 20160603
  Receipt Date: 20160603
  Transmission Date: 20160815
  Serious: Yes (Hospitalization)
  Sender: FDA-Public Use
  Company Number: None

PATIENT
  Age: 73 Year
  Sex: Female
  Weight: 103.4 kg

DRUGS (13)
  1. MULTAQ [Suspect]
     Active Substance: DRONEDARONE
     Indication: ATRIAL FIBRILLATION
     Route: 048
  2. APIXABAN [Concomitant]
     Active Substance: APIXABAN
  3. CELEBREX [Concomitant]
     Active Substance: CELECOXIB
  4. FLUOXETINE [Concomitant]
     Active Substance: FLUOXETINE HYDROCHLORIDE
  5. LEVOTHYROXINE. [Concomitant]
     Active Substance: LEVOTHYROXINE
  6. SYMBICORT [Concomitant]
     Active Substance: BUDESONIDE\FORMOTEROL FUMARATE DIHYDRATE
  7. MAG OX [Concomitant]
     Active Substance: MAGNESIUM OXIDE
  8. TOPROL XL [Concomitant]
     Active Substance: METOPROLOL SUCCINATE
  9. VITAMIN D [Concomitant]
     Active Substance: CHOLECALCIFEROL
  10. ASPIRIN. [Concomitant]
     Active Substance: ASPIRIN
  11. COENZYME Q10 [Concomitant]
     Active Substance: UBIDECARENONE
  12. ESTRADIOL. [Concomitant]
     Active Substance: ESTRADIOL
  13. ADALAT [Concomitant]
     Active Substance: NIFEDIPINE

REACTIONS (3)
  - Dyspnoea [None]
  - Interstitial lung disease [None]
  - Hypoxia [None]

NARRATIVE: CASE EVENT DATE: 20160517
